FAERS Safety Report 19056536 (Version 1)
Quarter: 2021Q1

REPORT INFORMATION
  Report Type: Spontaneous
  Country: US (occurrence: US)
  Receive Date: 20210325
  Receipt Date: 20210325
  Transmission Date: 20210420
  Serious: Yes (Hospitalization)
  Sender: FDA-Public Use
  Company Number: None

PATIENT
  Age: 43 Year
  Sex: Female
  Weight: 90.4 kg

DRUGS (10)
  1. IRON SUCROSE [Concomitant]
     Active Substance: IRON SUCROSE
  2. IRON, CARBONYL?VITAMIN C [Concomitant]
  3. DIPHENOXYLATE?ATROPINE [Concomitant]
     Active Substance: ATROPINE\DIPHENOXYLATE
  4. ENTYVIO [Suspect]
     Active Substance: VEDOLIZUMAB
  5. CROFELEMER [Concomitant]
     Active Substance: CROFELEMER
  6. DICYCLOMINE [Concomitant]
     Active Substance: DICYCLOMINE HYDROCHLORIDE
  7. COLESEVELAM [Concomitant]
     Active Substance: COLESEVELAM
  8. CYANOCOBALAMIN. [Concomitant]
     Active Substance: CYANOCOBALAMIN
  9. ONDANSETRON [Concomitant]
     Active Substance: ONDANSETRON
  10. RIFAXIMIN. [Concomitant]
     Active Substance: RIFAXIMIN

REACTIONS (14)
  - Lower gastrointestinal haemorrhage [None]
  - Pyrexia [None]
  - Hypotension [None]
  - Abdominal distension [None]
  - Serratia bacteraemia [None]
  - Dizziness [None]
  - Device related infection [None]
  - Sepsis [None]
  - Vomiting [None]
  - Abdominal pain [None]
  - Nausea [None]
  - Haematemesis [None]
  - Diarrhoea haemorrhagic [None]
  - Chills [None]
